FAERS Safety Report 12824227 (Version 1)
Quarter: 2016Q4

REPORT INFORMATION
  Report Type: Spontaneous
  Country: US (occurrence: US)
  Receive Date: 20161007
  Receipt Date: 20161007
  Transmission Date: 20170207
  Serious: Yes (Other)
  Sender: FDA-Public Use
  Company Number: None

PATIENT
  Age: 47 Year
  Sex: Female
  Weight: 78.75 kg

DRUGS (5)
  1. BONTRIL [Concomitant]
     Active Substance: PHENDIMETRAZINE TARTRATE
  2. XANAX [Concomitant]
     Active Substance: ALPRAZOLAM
  3. ZYRTEC [Concomitant]
     Active Substance: CETIRIZINE HYDROCHLORIDE
  4. DUAVEE [Suspect]
     Active Substance: BAZEDOXIFENE ACETATE\ESTROGENS, CONJUGATED
     Indication: HOT FLUSH
     Route: 048
     Dates: start: 20160913, end: 20161002
  5. FLONASE [Concomitant]
     Active Substance: FLUTICASONE PROPIONATE

REACTIONS (5)
  - Loss of consciousness [None]
  - Fall [None]
  - Incontinence [None]
  - Head injury [None]
  - Seizure [None]

NARRATIVE: CASE EVENT DATE: 20161002
